FAERS Safety Report 10016697 (Version 1)
Quarter: 2014Q1

REPORT INFORMATION
  Report Type: Spontaneous
  Country: US (occurrence: US)
  Receive Date: 20140318
  Receipt Date: 20140318
  Transmission Date: 20141002
  Serious: No
  Sender: FDA-Public Use
  Company Number: US-US-EMD SERONO, INC.-7275117

PATIENT
  Sex: Female
  Weight: 84 kg

DRUGS (2)
  1. REBIF [Suspect]
     Indication: MULTIPLE SCLEROSIS
     Route: 058
     Dates: start: 20121119
  2. PNEUMOCOCCAL VACCINE [Concomitant]
     Indication: PRODUCT USED FOR UNKNOWN INDICATION
     Dates: start: 20121024

REACTIONS (15)
  - Tremor [Not Recovered/Not Resolved]
  - Reflex test abnormal [Not Recovered/Not Resolved]
  - Gait spastic [Not Recovered/Not Resolved]
  - Memory impairment [Recovering/Resolving]
  - Memory impairment [Not Recovered/Not Resolved]
  - Mood altered [Recovered/Resolved]
  - Fall [Unknown]
  - Constipation [Recovered/Resolved]
  - Asthenia [Recovering/Resolving]
  - Anaemia [Unknown]
  - Fatigue [Not Recovered/Not Resolved]
  - Injection site mass [Recovered/Resolved]
  - Injection site erythema [Recovered/Resolved]
  - Injection site pain [Recovered/Resolved]
  - Injection site reaction [Unknown]
